FAERS Safety Report 24265361 (Version 1)
Quarter: 2024Q3

REPORT INFORMATION
  Report Type: Spontaneous
  Country: US (occurrence: US)
  Receive Date: 20240829
  Receipt Date: 20240829
  Transmission Date: 20241017
  Serious: No
  Sender: INSUD PHARMA
  Company Number: US-INSUD PHARMA-2408US06445

PATIENT

DRUGS (2)
  1. ESTRADIOL VALERATE [Suspect]
     Active Substance: ESTRADIOL VALERATE
     Indication: Oestrogen deficiency
     Dosage: UNK
     Route: 030
     Dates: start: 2022
  2. LEVOTHYROXINE [Concomitant]
     Active Substance: LEVOTHYROXINE\LEVOTHYROXINE SODIUM
     Indication: Thyroid disorder
     Dosage: 80 MICROGRAM, 1/DAY
     Route: 048

REACTIONS (5)
  - Injection site swelling [Recovered/Resolved]
  - Rash [Recovered/Resolved]
  - Pruritus [Recovered/Resolved]
  - Frustration tolerance decreased [Recovered/Resolved]
  - Product substitution issue [Unknown]

NARRATIVE: CASE EVENT DATE: 20220101
